FAERS Safety Report 4565962-0 (Version None)
Quarter: 2005Q1

REPORT INFORMATION
  Report Type: 
  Country: None (occurrence: None)
  Receive Date: 20050131
  Receipt Date: 20041122
  Transmission Date: 20050727
  Serious: Yes (Hospitalization)
  Sender: FDA-Public Use
  Company Number: JP-MERCK-0411USA04050

PATIENT
  Age: 73 Year
  Sex: Female
  Weight: 36 kg

DRUGS (14)
  1. STROMECTOL [Suspect]
     Indication: ACARODERMATITIS
     Route: 048
     Dates: start: 20041118, end: 20041118
  2. NEORAL [Suspect]
     Indication: RHEUMATOID ARTHRITIS
     Route: 048
     Dates: start: 20041108, end: 20041115
  3. PREDNISOLONE [Concomitant]
     Indication: RHEUMATOID ARTHRITIS
     Route: 048
  4. PREDNISOLONE [Concomitant]
     Route: 048
  5. ETODOLAC [Concomitant]
     Indication: PAIN
     Route: 048
  6. VITAMIN E NICOTINATE [Concomitant]
     Route: 048
  7. CALCIUM ASPARTATE [Concomitant]
     Indication: OSTEOPOROSIS
     Route: 048
  8. ALFACALCIDOL [Concomitant]
     Indication: OSTEOPOROSIS
     Route: 048
  9. CYTOTEC [Concomitant]
     Route: 048
  10. GANATON [Concomitant]
     Route: 048
  11. MENATETRENONE [Concomitant]
     Route: 048
  12. AMOBAN [Concomitant]
     Indication: INSOMNIA
     Route: 048
  13. ALOSENN [Concomitant]
     Indication: CONSTIPATION
     Route: 048
  14. SIMVASTATIN [Concomitant]
     Indication: HYPERLIPIDAEMIA
     Route: 048

REACTIONS (6)
  - ALANINE AMINOTRANSFERASE INCREASED [None]
  - ANOREXIA [None]
  - ASPARTATE AMINOTRANSFERASE INCREASED [None]
  - BLOOD ALKALINE PHOSPHATASE INCREASED [None]
  - LIVER DISORDER [None]
  - NAUSEA [None]
